FAERS Safety Report 10203434 (Version 1)
Quarter: 2014Q2

REPORT INFORMATION
  Report Type: Spontaneous
  Country: US (occurrence: None)
  Receive Date: 20140523
  Receipt Date: 20140523
  Transmission Date: 20141212
  Serious: Yes (Hospitalization)
  Sender: FDA-Public Use
  Company Number: UNT-2014-000449

PATIENT
  Age: 68 Year
  Sex: Female
  Weight: 74.8 kg

DRUGS (2)
  1. REMODULIN [Suspect]
     Indication: PULMONARY ARTERIAL HYPERTENSION
     Route: 058
  2. LETAIRES (AMBRISENTAN) [Concomitant]

REACTIONS (1)
  - Cardiac failure congestive [None]
